FAERS Safety Report 6427644-X (Version None)
Quarter: 2009Q4

REPORT INFORMATION
  Report Type: 
  Country: None (occurrence: None)
  Receive Date: 20091104
  Receipt Date: 20091030
  Transmission Date: 20100525
  Serious: Yes (Hospitalization)
  Sender: FDA-Public Use
  Company Number: IT-ABBOTT-05P-083-0310190-00

PATIENT
  Sex: Female
  Weight: 45 kg

DRUGS (11)
  1. HUMIRA [Suspect]
     Indication: RHEUMATOID ARTHRITIS
     Route: 058
     Dates: start: 20041004, end: 20050822
  2. TRIATEC [Concomitant]
     Indication: HYPERTENSION
     Dates: start: 20050830
  3. DELTACORTENE [Concomitant]
     Indication: RHEUMATOID ARTHRITIS
     Dates: start: 19991217
  4. NORVASC [Concomitant]
     Indication: HYPERTENSION
     Dates: start: 20050830
  5. NAPROSYN [Concomitant]
     Indication: RHEUMATOID ARTHRITIS
     Dates: start: 20051110
  6. MOPRAL [Concomitant]
     Indication: PROPHYLAXIS AGAINST GASTROINTESTINAL ULCER
     Dates: start: 20020524
  7. KOURENOL [Concomitant]
     Indication: HYPERTENSION
     Dates: start: 20051012
  8. ASPIRIN [Concomitant]
     Indication: HYPERTENSION
     Dates: start: 20051011
  9. EUTIROX [Concomitant]
     Indication: HYPERTHYROIDISM
     Dates: start: 20050908
  10. XANAX [Concomitant]
     Indication: ANXIETY
     Dates: start: 20051017
  11. RYEGOSTIN [Concomitant]
     Indication: PANCYTOPENIA
     Dates: start: 20051025

REACTIONS (1)
  - LEISHMANIASIS [None]
